FAERS Safety Report 9423621 (Version 1)
Quarter: 2013Q3

REPORT INFORMATION
  Report Type: Spontaneous
  Country: GB (occurrence: GB)
  Receive Date: 20130726
  Receipt Date: 20130726
  Transmission Date: 20140515
  Serious: Yes (Disabling, Other)
  Sender: FDA-Public Use
  Company Number: PHHY2013GB076942

PATIENT
  Age: 44 Year
  Sex: Female
  Weight: 74 kg

DRUGS (6)
  1. GABAPENTIN [Suspect]
     Indication: NEURALGIA
     Dosage: 100 MG, TID
     Route: 048
     Dates: start: 20130704
  2. DOSULEPIN [Suspect]
     Dosage: 75 MG, QD
     Route: 048
     Dates: start: 20130501
  3. NAPROXEN [Suspect]
     Indication: NEURALGIA
     Dosage: 500 MG, BID
     Route: 048
     Dates: start: 20130601
  4. LORATADINE [Concomitant]
     Indication: MULTIPLE ALLERGIES
  5. VITAMIN B12 [Concomitant]
     Indication: ROUTINE HEALTH MAINTENANCE
     Dosage: 1000 IU, UNK
  6. VALTREX [Concomitant]
     Dosage: 500 MG, QD

REACTIONS (12)
  - Negative thoughts [Not Recovered/Not Resolved]
  - Vision blurred [Not Recovered/Not Resolved]
  - Lethargy [Not Recovered/Not Resolved]
  - Depression [Not Recovered/Not Resolved]
  - Nausea [Not Recovered/Not Resolved]
  - Malaise [Not Recovered/Not Resolved]
  - Confusional state [Not Recovered/Not Resolved]
  - Amnesia [Not Recovered/Not Resolved]
  - Chest pain [Not Recovered/Not Resolved]
  - Palpitations [Not Recovered/Not Resolved]
  - Decreased appetite [Not Recovered/Not Resolved]
  - Hypertension [Not Recovered/Not Resolved]
